FAERS Safety Report 4977030-4 (Version None)
Quarter: 2006Q1

REPORT INFORMATION
  Report Type: 
  Country: None (occurrence: None)
  Receive Date: 20060221
  Receipt Date: 20050203
  Transmission Date: 20060701
  Serious: Yes (Other)
  Sender: FDA-Public Use
  Company Number: PHEH2005US01637

PATIENT
  Sex: Female

DRUGS (4)
  1. DIOVAN [Suspect]
     Dosage: 40 MG, QD, ORAL; 80 MG, QD, ORAL
     Route: 048
  2. LOPRESSOR [Suspect]
     Dosage: 12.5 MG; 50 MG
  3. NITRO PATCH (GLYCERYL TRINITRATE) [Suspect]
     Indication: ANGINA PECTORIS
     Dosage: 0.05 MG/H, TRANSDERMAL
     Route: 062
     Dates: end: 20050101
  4. ASPIRIN [Concomitant]

REACTIONS (3)
  - BLOOD PRESSURE DECREASED [None]
  - DIZZINESS [None]
  - SYNCOPE [None]
